FAERS Safety Report 10157127 (Version 1)
Quarter: 2014Q2

REPORT INFORMATION
  Report Type: Spontaneous
  Country: US (occurrence: US)
  Receive Date: 20140507
  Receipt Date: 20140507
  Transmission Date: 20141212
  Serious: No
  Sender: FDA-Public Use
  Company Number: US-PFIZER INC-2014124735

PATIENT
  Sex: Female
  Weight: 96.15 kg

DRUGS (4)
  1. OXYCODONE [Suspect]
     Indication: PAIN
     Dosage: 5 MG, 4X/DAY
     Route: 048
  2. OXYCODONE [Suspect]
     Indication: HYPOAESTHESIA
  3. OXYCODONE [Suspect]
     Indication: PARAESTHESIA
  4. LISINOPRIL W/HYDROCHLOROTHIAZIDE [Concomitant]
     Indication: HYPERTENSION
     Dosage: 20/12.5 MG, UNK
     Route: 048

REACTIONS (2)
  - Drug ineffective [Unknown]
  - Activities of daily living impaired [Unknown]
